FAERS Safety Report 22111952 (Version 4)
Quarter: 2023Q4

REPORT INFORMATION
  Report Type: Report from Study
  Country: DE (occurrence: DE)
  Receive Date: 20230318
  Receipt Date: 20231201
  Transmission Date: 20240110
  Serious: Yes (Hospitalization, Other)
  Sender: FDA-Public Use
  Company Number: DE-002147023-NVSC2023DE057832

PATIENT
  Age: 65 Year
  Sex: Female
  Weight: 108 kg

DRUGS (4)
  1. COSENTYX [Suspect]
     Active Substance: SECUKINUMAB
     Indication: Psoriasis
     Dosage: 300 MG, QMO, (150 MG 2 PREFILLED SYRINGES EVERY 4 WEEKS (LAST 14 DAYS AGO)
     Route: 058
     Dates: start: 20180518
  2. COSENTYX [Suspect]
     Active Substance: SECUKINUMAB
  3. CANDESARTAN [Concomitant]
     Active Substance: CANDESARTAN
     Indication: Product used for unknown indication
     Dosage: 8 MG, QD (1-0-0)
     Route: 065
  4. CANDESARTAN [Concomitant]
     Active Substance: CANDESARTAN
     Dosage: 8 MG, QD, BID, (1-0-1)
     Route: 065

REACTIONS (25)
  - Left ventricular failure [Not Recovered/Not Resolved]
  - Myocardial infarction [Unknown]
  - Ischaemic cardiomyopathy [Unknown]
  - Dilated cardiomyopathy [Unknown]
  - Coronary artery stenosis [Not Recovered/Not Resolved]
  - Mitral valve incompetence [Unknown]
  - Tricuspid valve incompetence [Unknown]
  - Myocardial ischaemia [Unknown]
  - Dyspnoea exertional [Not Recovered/Not Resolved]
  - Coronary artery disease [Not Recovered/Not Resolved]
  - Bile duct stone [Unknown]
  - Aortic valve sclerosis [Unknown]
  - Left ventricular dilatation [Unknown]
  - Oedema [Unknown]
  - Clubbing [Unknown]
  - Cyanosis [Unknown]
  - Obesity [Unknown]
  - Herpes zoster [Unknown]
  - Dermatitis psoriasiform [Unknown]
  - Oedema peripheral [Unknown]
  - Scar [Unknown]
  - Breath sounds abnormal [Unknown]
  - Back pain [Recovered/Resolved]
  - Nasopharyngitis [Recovered/Resolved]
  - Psoriasis [Unknown]

NARRATIVE: CASE EVENT DATE: 20221101
